FAERS Safety Report 7969718-8 (Version None)
Quarter: 2011Q4

REPORT INFORMATION
  Report Type: 
  Country: None (occurrence: None)
  Receive Date: 20111212
  Receipt Date: 20111129
  Transmission Date: 20120403
  Serious: Yes (Death)
  Sender: FDA-Public Use
  Company Number: ES-JNJFOC-20110103667

PATIENT
  Age: 57 Year
  Sex: Female

DRUGS (2)
  1. REMICADE [Suspect]
     Indication: CROHN'S DISEASE
     Dosage: WEEKS 0, 2 AND 6 WEEKS AND EVERY 8 WEEKS
     Route: 042
     Dates: start: 20100401, end: 20100901
  2. IMURAN [Suspect]
     Indication: CROHN'S DISEASE
     Route: 048
     Dates: start: 20091201, end: 20100501

REACTIONS (2)
  - PLASMABLASTIC LYMPHOMA [None]
  - CARDIO-RESPIRATORY ARREST [None]
